FAERS Safety Report 19283899 (Version 3)
Quarter: 2021Q2

REPORT INFORMATION
  Report Type: Spontaneous
  Country: CA (occurrence: CA)
  Receive Date: 20210520
  Receipt Date: 20210625
  Transmission Date: 20210717
  Serious: Yes (Hospitalization, Other)
  Sender: FDA-Public Use
  Company Number: CA-CELLTRION INC.-2021CA006803

PATIENT

DRUGS (2)
  1. INFLECTRA [Suspect]
     Active Substance: INFLIXIMAB-DYYB
     Dosage: UNK
     Dates: start: 20201023
  2. INFLECTRA [Suspect]
     Active Substance: INFLIXIMAB-DYYB
     Dosage: UNK
     Route: 064
     Dates: start: 20210415

REACTIONS (3)
  - Maternal exposure during pregnancy [Unknown]
  - Premature baby [Unknown]
  - Exposure via breast milk [Unknown]

NARRATIVE: CASE EVENT DATE: 202105
